FAERS Safety Report 21943133 (Version 2)
Quarter: 2023Q1

REPORT INFORMATION
  Report Type: Spontaneous
  Country: VN (occurrence: VN)
  Receive Date: 20230202
  Receipt Date: 20230207
  Transmission Date: 20230417
  Serious: Yes (Death, Other)
  Sender: FDA-Public Use
  Company Number: VN-BoehringerIngelheim-2023-BI-215368

PATIENT
  Age: 62 Year
  Sex: Female

DRUGS (1)
  1. ALTEPLASE [Suspect]
     Active Substance: ALTEPLASE
     Indication: Cerebrovascular accident
     Dosage: ACTILYSE 50 MG, 1 VIAL OF ACTIVE INGREDIENT FOR IV INFUSION + 1 VIAL OF STERILIZED WATER FOR INJECTI
     Route: 042
     Dates: start: 20230127, end: 20230127

REACTIONS (3)
  - Cardiac arrest [Fatal]
  - Shock [Not Recovered/Not Resolved]
  - Myocardial infarction [Unknown]

NARRATIVE: CASE EVENT DATE: 20230127
